FAERS Safety Report 12350098 (Version 2)
Quarter: 2016Q3

REPORT INFORMATION
  Report Type: Spontaneous
  Country: US (occurrence: US)
  Receive Date: 20160510
  Receipt Date: 20160817
  Transmission Date: 20161109
  Serious: Yes (Hospitalization, Other)
  Sender: FDA-Public Use
  Company Number: US-BAYER-2016-000697

PATIENT
  Age: 80 Year
  Sex: Male

DRUGS (11)
  1. NAMENDA [Concomitant]
     Active Substance: MEMANTINE HYDROCHLORIDE
     Indication: DEMENTIA ALZHEIMER^S TYPE
     Dosage: 10 MG, UNK
     Route: 065
  2. CARDIA [Concomitant]
     Active Substance: AJMALINE
     Indication: HYPERTENSION
     Dosage: 240 MG, UNK
     Route: 065
  3. XARELTO [Suspect]
     Active Substance: RIVAROXABAN
     Indication: CEREBROVASCULAR ACCIDENT PROPHYLAXIS
     Dosage: 10 MG, UNK
     Route: 048
     Dates: start: 20120301, end: 20131231
  4. XARELTO [Suspect]
     Active Substance: RIVAROXABAN
     Indication: ATRIAL FLUTTER
     Dosage: 20 MG, UNK
     Route: 048
     Dates: start: 20150217, end: 20150527
  5. TRILIPIX [Concomitant]
     Active Substance: FENOFIBRIC ACID
     Indication: BLOOD TRIGLYCERIDES INCREASED
     Dosage: 135 MG, UNK
     Route: 065
  6. ACETYLSALICYLIC ACID({=100 MG) [Suspect]
     Active Substance: ASPIRIN
     Indication: ATRIAL FLUTTER
     Dosage: 81 MG, UNK
     Route: 048
     Dates: end: 20131231
  7. LANOXIN [Concomitant]
     Active Substance: DIGOXIN
     Indication: HYPERTENSION
     Dosage: .25 MG, UNK
     Route: 048
     Dates: end: 20131231
  8. PROPAFENONE. [Concomitant]
     Active Substance: PROPAFENONE
     Indication: ATRIAL FLUTTER
     Dosage: 30 MG, TID
     Route: 048
     Dates: end: 20131231
  9. DIOVAN HCT [Concomitant]
     Active Substance: HYDROCHLOROTHIAZIDE\VALSARTAN
     Indication: HYPERTENSION
     Dosage: UNK
     Route: 048
     Dates: end: 20131231
  10. XARELTO [Suspect]
     Active Substance: RIVAROXABAN
     Indication: ATRIAL FIBRILLATION
     Dosage: 20 MG, UNK
     Route: 048
     Dates: start: 20140724, end: 20140828
  11. TRILIPIX [Concomitant]
     Active Substance: FENOFIBRIC ACID
     Indication: BLOOD TRIGLYCERIDES INCREASED
     Dosage: 135 MG, UNK
     Route: 065

REACTIONS (2)
  - Cerebrovascular accident [Unknown]
  - Diverticulum intestinal haemorrhagic [Recovered/Resolved]

NARRATIVE: CASE EVENT DATE: 201312
